FAERS Safety Report 10073487 (Version 1)
Quarter: 2014Q2

REPORT INFORMATION
  Report Type: Report from Study
  Country: JP (occurrence: JP)
  Receive Date: 20140411
  Receipt Date: 20140411
  Transmission Date: 20141212
  Serious: Yes (Death)
  Sender: FDA-Public Use
  Company Number: JP-B.I. PHARMACEUTICALS,INC./RIDGEFIELD-2014-BI-15899NB

PATIENT
  Age: 81 Year
  Sex: Female
  Weight: 59 kg

DRUGS (4)
  1. PRAZAXA [Suspect]
     Indication: CEREBROVASCULAR ACCIDENT PROPHYLAXIS
     Dosage: 220 MG
     Route: 048
     Dates: start: 20131114, end: 20131115
  2. NORVASC [Concomitant]
     Dosage: 5 MG
     Route: 048
     Dates: end: 20131115
  3. LIPOVAS [Concomitant]
     Dosage: 5 MG
     Route: 048
     Dates: end: 20131115
  4. GASTER [Concomitant]
     Dosage: 40 MG
     Route: 048
     Dates: end: 20131114

REACTIONS (2)
  - Asphyxia [Fatal]
  - Cardio-respiratory arrest [Fatal]
